FAERS Safety Report 5845770-0 (Version None)
Quarter: 2008Q3

REPORT INFORMATION
  Report Type: 
  Country: None (occurrence: None)
  Receive Date: 20080814
  Receipt Date: 20080728
  Transmission Date: 20090109
  Serious: No
  Sender: FDA-Public Use
  Company Number: US-BOEHRINGER INGELHEIM GMBH, GERMANY-2008-BP-11827BP

PATIENT
  Age: 54 Year
  Sex: Male

DRUGS (5)
  1. FLOMAX [Suspect]
     Indication: BLADDER STENOSIS
     Route: 048
     Dates: start: 20080401
  2. NARDIL [Concomitant]
     Indication: ANXIETY
  3. VALIUM [Concomitant]
     Indication: ANXIETY
  4. TENORMIN [Concomitant]
     Indication: HEART RATE INCREASED
  5. COLAZAL [Concomitant]
     Indication: COLITIS ULCERATIVE

REACTIONS (2)
  - DYSURIA [None]
  - NOCTURIA [None]
